FAERS Safety Report 17315768 (Version 2)
Quarter: 2020Q4

REPORT INFORMATION
  Report Type: Spontaneous
  Country: US (occurrence: US)
  Receive Date: 20200124
  Receipt Date: 20201009
  Transmission Date: 20210113
  Serious: No
  Sender: FDA-Public Use
  Company Number: US-SA-2020SA017224

PATIENT

DRUGS (13)
  1. PREDNISONE. [Concomitant]
     Active Substance: PREDNISONE
  2. MOMETASONE [Concomitant]
     Active Substance: MOMETASONE
  3. OMEPRAZOLE. [Concomitant]
     Active Substance: OMEPRAZOLE
  4. HYDROXYZINE [Concomitant]
     Active Substance: HYDROXYZINE HYDROCHLORIDE
  5. DUPIXENT [Suspect]
     Active Substance: DUPILUMAB
     Indication: ASTHMA
     Dosage: 300 MG, QOW
     Route: 058
     Dates: start: 20191224
  6. MONTELUKAST [Concomitant]
     Active Substance: MONTELUKAST SODIUM
  7. EPINEPHRINE. [Concomitant]
     Active Substance: EPINEPHRINE
  8. TRIAMCINOLONE [Concomitant]
     Active Substance: TRIAMCINOLONE
  9. GRASTEK [Concomitant]
     Active Substance: PHLEUM PRATENSE POLLEN
  10. BUDESONIDE;FORMOTEROL [Concomitant]
     Active Substance: BUDESONIDE\FORMOTEROL
  11. KETOCONAZOLE. [Concomitant]
     Active Substance: KETOCONAZOLE
  12. ALBUTEROL [SALBUTAMOL] [Concomitant]
     Active Substance: ALBUTEROL
  13. AMOXICILLIN AND POTASSIUM CLAVULANATE [Concomitant]

REACTIONS (4)
  - Vision blurred [Unknown]
  - Sinusitis [Not Recovered/Not Resolved]
  - Headache [Unknown]
  - Product use issue [Unknown]
